FAERS Safety Report 12262714 (Version 6)
Quarter: 2018Q1

REPORT INFORMATION
  Report Type: Report from Study
  Country: DE (occurrence: DE)
  Receive Date: 20160413
  Receipt Date: 20180115
  Transmission Date: 20180508
  Serious: Yes (Hospitalization, Other)
  Sender: FDA-Public Use
  Company Number: DE-ROCHE-1740277

PATIENT
  Sex: Female

DRUGS (6)
  1. CORTISONE [Concomitant]
     Active Substance: CORTISONE\HYDROCORTISONE
     Indication: RHEUMATOID ARTHRITIS
     Dosage: FOR THREE DAYS, THEN CORTISONE IS TAPERED OFF
     Route: 065
  2. RAMIPRIL. [Concomitant]
     Active Substance: RAMIPRIL
     Indication: HYPERTENSION
     Route: 065
  3. ROACTEMRA [Suspect]
     Active Substance: TOCILIZUMAB
     Indication: RHEUMATOID ARTHRITIS
     Route: 058
     Dates: start: 20140602, end: 201602
  4. RAMIPRIL. [Concomitant]
     Active Substance: RAMIPRIL
     Route: 065
     Dates: start: 201702
  5. ROACTEMRA [Suspect]
     Active Substance: TOCILIZUMAB
     Route: 058
     Dates: start: 20160415, end: 20171115
  6. METHOTREXATE. [Concomitant]
     Active Substance: METHOTREXATE
     Indication: RHEUMATOID ARTHRITIS
     Route: 065

REACTIONS (7)
  - Epistaxis [Recovered/Resolved]
  - Arthropathy [Recovered/Resolved]
  - Arthralgia [Not Recovered/Not Resolved]
  - Hypertension [Recovered/Resolved]
  - Drug effect decreased [Unknown]
  - Joint swelling [Recovered/Resolved]
  - Influenza like illness [Unknown]

NARRATIVE: CASE EVENT DATE: 201701
